FAERS Safety Report 7631230-3 (Version None)
Quarter: 2011Q3

REPORT INFORMATION
  Report Type: 
  Country: None (occurrence: None)
  Receive Date: 20110725
  Receipt Date: 20110713
  Transmission Date: 20111222
  Serious: Yes (Disabling)
  Sender: FDA-Public Use
  Company Number: FR-JNJFOC-20110706251

PATIENT
  Age: 14 Year
  Sex: Female
  Weight: 72 kg

DRUGS (2)
  1. PREZISTA [Suspect]
     Indication: PRODUCT USED FOR UNKNOWN INDICATION
     Route: 048
  2. RITONAVIR [Concomitant]

REACTIONS (4)
  - VOMITING [None]
  - HEADACHE [None]
  - NAUSEA [None]
  - VERTIGO [None]
